FAERS Safety Report 7109934-0 (Version None)
Quarter: 2010Q4

REPORT INFORMATION
  Report Type: 
  Country: None (occurrence: None)
  Receive Date: 20101118
  Receipt Date: 20101112
  Transmission Date: 20110411
  Serious: Yes (Death, Life-Threatening, Hospitalization)
  Sender: FDA-Public Use
  Company Number: NL-CELGENEUS-114-21880-10101933

PATIENT
  Sex: Female
  Weight: 65 kg

DRUGS (11)
  1. REVLIMID [Suspect]
     Indication: MULTIPLE MYELOMA
     Route: 048
     Dates: start: 20100720
  2. REVLIMID [Suspect]
     Route: 048
     Dates: start: 20100914, end: 20101004
  3. MELPHALAN HYDROCHLORIDE [Suspect]
     Indication: MULTIPLE MYELOMA
     Route: 048
     Dates: start: 20100720
  4. MELPHALAN HYDROCHLORIDE [Suspect]
     Route: 048
     Dates: start: 20100914, end: 20100917
  5. PREDNISONE [Suspect]
     Indication: MULTIPLE MYELOMA
     Route: 048
     Dates: start: 20100720
  6. PREDNISONE [Suspect]
     Route: 048
     Dates: start: 20100914, end: 20100917
  7. AMOXICILLIN [Concomitant]
     Indication: FURUNCLE
     Route: 048
     Dates: start: 20100921, end: 20100928
  8. AMOXICILLIN [Concomitant]
     Route: 048
     Dates: start: 20101012, end: 20101021
  9. ATACAND [Concomitant]
     Indication: HYPERTENSION
     Route: 048
     Dates: start: 20051102, end: 20101012
  10. CARBASALAATCALCIUM [Concomitant]
     Route: 048
     Dates: start: 20100705, end: 20101025
  11. PANTOPRAZOLE SODIUM [Concomitant]
     Indication: PROPHYLAXIS
     Route: 048
     Dates: start: 20101012, end: 20101021

REACTIONS (3)
  - HAEMORRHAGE [None]
  - PYREXIA [None]
  - SPLENIC RUPTURE [None]
